FAERS Safety Report 9423832 (Version 1)
Quarter: 2013Q3

REPORT INFORMATION
  Report Type: Report from Study
  Country: BR (occurrence: BR)
  Receive Date: 20130729
  Receipt Date: 20130729
  Transmission Date: 20140515
  Serious: Yes (Other)
  Sender: FDA-Public Use
  Company Number: BR-ROCHE-1253556

PATIENT
  Sex: Female
  Weight: 77.09 kg

DRUGS (10)
  1. XOLAIR [Suspect]
     Indication: ASTHMA
     Dosage: 1 AMPOULE
     Route: 058
     Dates: start: 2005
  2. XOLAIR [Suspect]
     Route: 058
     Dates: start: 20130625
  3. FORASEQ (BRAZIL) [Concomitant]
     Dosage: 12/ 140 MCG
     Route: 065
  4. MIFLONIDE [Concomitant]
     Route: 065
  5. BAMIFYLLINE HYDROCHLORIDE [Concomitant]
     Route: 065
  6. PURAN T4 [Concomitant]
     Route: 065
  7. CLOPIDOGREL [Concomitant]
     Route: 065
     Dates: start: 2012
  8. LOSARTAN [Concomitant]
     Route: 065
     Dates: start: 2012
  9. VERAPAMIL [Concomitant]
     Route: 065
     Dates: start: 2012
  10. HYDROCHLOROTHIAZIDE [Concomitant]
     Route: 065

REACTIONS (2)
  - Chest pain [Recovered/Resolved]
  - Weight decreased [Not Recovered/Not Resolved]
